FAERS Safety Report 8018129-8 (Version None)
Quarter: 2012Q1

REPORT INFORMATION
  Report Type: 
  Country: None (occurrence: None)
  Receive Date: 20120103
  Receipt Date: 20111227
  Transmission Date: 20120608
  Serious: No
  Sender: FDA-Public Use
  Company Number: US-B.I. PHARMACEUTICALS,INC./RIDGEFIELD-2011-BP-28861BP

PATIENT
  Sex: Male

DRUGS (1)
  1. PRADAXA [Suspect]
     Dates: start: 20110801

REACTIONS (1)
  - DIPLOPIA [None]
